FAERS Safety Report 8251131-X (Version None)
Quarter: 2012Q2

REPORT INFORMATION
  Report Type: 
  Country: None (occurrence: None)
  Receive Date: 20120402
  Receipt Date: 20120322
  Transmission Date: 20120825
  Serious: Yes (Other)
  Sender: FDA-Public Use
  Company Number: CA-JNJFOC-20120311556

PATIENT
  Sex: Female
  Weight: 134 kg

DRUGS (3)
  1. AZATHIOPRINE [Concomitant]
     Route: 048
     Dates: start: 20090101
  2. PREDNISONE TAB [Concomitant]
     Route: 048
     Dates: start: 20111001
  3. REMICADE [Suspect]
     Indication: SARCOIDOSIS
     Route: 042
     Dates: start: 20080101

REACTIONS (4)
  - FALL [None]
  - INJURY [None]
  - EXCORIATION [None]
  - SINUSITIS [None]
